FAERS Safety Report 16187237 (Version 1)
Quarter: 2019Q2

REPORT INFORMATION
  Report Type: Spontaneous
  Country: DE (occurrence: DE)
  Receive Date: 20190411
  Receipt Date: 20190411
  Transmission Date: 20190711
  Serious: Yes (Death, Other)
  Sender: FDA-Public Use
  Company Number: DE-CELLTRION INC.-2019DE020271

PATIENT

DRUGS (5)
  1. RITUXIMAB (UNKNOWN) [Suspect]
     Active Substance: RITUXIMAB
     Indication: DIFFUSE LARGE B-CELL LYMPHOMA
     Dosage: 250 MG/M2
  2. BUSULFAN. [Suspect]
     Active Substance: BUSULFAN
     Indication: DIFFUSE LARGE B-CELL LYMPHOMA
  3. ANTI-THYMOCYTE GLOBULIN (RABBIT) NOS [Suspect]
     Active Substance: LAPINE T-LYMPHOCYTE IMMUNE GLOBULIN
     Indication: DIFFUSE LARGE B-CELL LYMPHOMA
     Dosage: UNK
  4. THIOTEPA. [Suspect]
     Active Substance: THIOTEPA
     Indication: DIFFUSE LARGE B-CELL LYMPHOMA
  5. FLUDARABINE PHOSPHATE. [Suspect]
     Active Substance: FLUDARABINE PHOSPHATE
     Indication: DIFFUSE LARGE B-CELL LYMPHOMA

REACTIONS (4)
  - Therapeutic response decreased [Unknown]
  - Neutropenia [Recovered/Resolved]
  - Pulmonary sepsis [Fatal]
  - Chronic kidney disease [Unknown]
